FAERS Safety Report 4977525-3 (Version None)
Quarter: 2006Q2

REPORT INFORMATION
  Report Type: 
  Country: None (occurrence: None)
  Receive Date: 20060413
  Receipt Date: 20060331
  Transmission Date: 20061013
  Serious: Yes (Hospitalization)
  Sender: FDA-Public Use
  Company Number: 2006046825

PATIENT
  Age: 55 Year
  Sex: Male
  Weight: 58 kg

DRUGS (13)
  1. PREDNISOLONE [Suspect]
     Indication: ILL-DEFINED DISORDER
     Dosage: 80 MG (80 MG, 1 IN 1 D), ORAL
     Route: 048
  2. IRINOTECAN HCL [Suspect]
     Indication: GASTRIC CANCER
     Dosage: (322 MG, CYCLICAL), INTRAVENOUS
     Route: 042
     Dates: start: 20060110, end: 20060110
  3. EPOETIN ALFA (EPOETIN ALFA) [Suspect]
     Indication: ANAEMIA
     Dosage: 40000 I.U. (1 IN 1 WK), INTRADERMAL
     Route: 023
     Dates: start: 20051225, end: 20060120
  4. LEUCOVORIN CALCIUM [Suspect]
     Indication: GASTRIC CANCER
     Dosage: (358 MG, CYCLICAL), INTRAVENOUS
     Route: 042
     Dates: start: 20060110, end: 20060110
  5. FLUOROURACIL [Suspect]
     Indication: GASTRIC CANCER
     Dosage: (5000 MG, CYCLICAL), INTRAVENOUS
     Route: 042
     Dates: start: 20060110, end: 20060111
  6. ERBITUX [Suspect]
     Dosage: (250 MG, CYCLICAL), INTRAVENOUS
     Route: 042
     Dates: start: 20060110, end: 20060110
  7. ACTRAPID INSULIN NOVO (INSULIN) [Concomitant]
  8. LARGACTIL (CHLOPROMAZINE HYDROCHLORIDE) [Concomitant]
  9. ZOFRAN [Concomitant]
  10. DURAGESIC-100 [Concomitant]
  11. MORPHINE SULFATE [Concomitant]
  12. XANAX [Concomitant]
  13. OXYNORM (OXYCODONE HYDROCHLORIDE) [Concomitant]

REACTIONS (4)
  - HERPES SIMPLEX [None]
  - MUCOSAL INFLAMMATION [None]
  - TONGUE ULCERATION [None]
  - WEIGHT DECREASED [None]
